FAERS Safety Report 19694528 (Version 1)
Quarter: 2021Q3

REPORT INFORMATION
  Report Type: Report from Study
  Country: CA (occurrence: CA)
  Receive Date: 20210813
  Receipt Date: 20210813
  Transmission Date: 20211014
  Serious: Yes (Other)
  Sender: FDA-Public Use
  Company Number: CA-BEH-2021134724

PATIENT
  Age: 58 Year
  Sex: Male
  Weight: 47.5 kg

DRUGS (11)
  1. ZOPICLONE [Concomitant]
     Active Substance: ZOPICLONE
     Dosage: UNK, PRN
  2. METOPROLOL. [Concomitant]
     Active Substance: METOPROLOL
  3. FUROSEMIDE. [Concomitant]
     Active Substance: FUROSEMIDE
  4. AMLODIPINE [Concomitant]
     Active Substance: AMLODIPINE BESYLATE
  5. NEORAL [Concomitant]
     Active Substance: CYCLOSPORINE
  6. HIZENTRA [Suspect]
     Active Substance: HUMAN IMMUNOGLOBULIN G
     Indication: SECONDARY IMMUNODEFICIENCY
     Dosage: 6 GRAM, QW
     Route: 065
     Dates: start: 20210730
  7. MEPRON [Concomitant]
     Active Substance: ATOVAQUONE
  8. ENTECAVIR. [Concomitant]
     Active Substance: ENTECAVIR
  9. PREDNISONE. [Concomitant]
     Active Substance: PREDNISONE
  10. ARANESP [Concomitant]
     Active Substance: DARBEPOETIN ALFA
  11. ALOPURINOL [Concomitant]
     Active Substance: ALLOPURINOL

REACTIONS (1)
  - Sensitive skin [Unknown]

NARRATIVE: CASE EVENT DATE: 20210730
